FAERS Safety Report 14538992 (Version 3)
Quarter: 2018Q1

REPORT INFORMATION
  Report Type: Spontaneous
  Country: US (occurrence: US)
  Receive Date: 20180216
  Receipt Date: 20180315
  Transmission Date: 20180509
  Serious: Yes (Other)
  Sender: FDA-Public Use
  Company Number: US-BEH-2018087917

PATIENT
  Age: 47 Year
  Sex: Female

DRUGS (1)
  1. HIZENTRA [Suspect]
     Active Substance: HUMAN IMMUNOGLOBULIN G
     Indication: HYPOGAMMAGLOBULINAEMIA
     Dosage: 10 G (50 ML), QW
     Route: 058
     Dates: start: 20180117

REACTIONS (3)
  - Pyrexia [Unknown]
  - Pain [Unknown]
  - Kidney infection [Unknown]

NARRATIVE: CASE EVENT DATE: 20180205
